FAERS Safety Report 15929211 (Version 4)
Quarter: 2019Q1

REPORT INFORMATION
  Report Type: Spontaneous
  Country: JP (occurrence: JP)
  Receive Date: 20190206
  Receipt Date: 20190215
  Transmission Date: 20190417
  Serious: Yes (Life-Threatening, Hospitalization, Other)
  Sender: FDA-Public Use
  Company Number: JP-BAUSCH-BL-2019-003312

PATIENT
  Age: 75 Year
  Sex: Female

DRUGS (9)
  1. FLUOROURACIL. [Suspect]
     Active Substance: FLUOROURACIL
     Dosage: ONE CYCLE, ADMINISTERED FOR 23 COURSES OVER 1 YEAR
     Route: 065
  2. BEVACIZUMAB. [Suspect]
     Active Substance: BEVACIZUMAB
     Indication: COLON CANCER STAGE IV
     Dosage: ONE CYCLE, ADMINISTERED FOR 23 COURSES OVER 1 YEAR
     Route: 065
  3. OXALIPLATIN. [Suspect]
     Active Substance: OXALIPLATIN
     Indication: COLON CANCER STAGE IV
     Dosage: ONE CYCLE, ADMINISTERED FOR 23 COURSES OVER 1 YEAR
     Route: 065
  4. RAMUCIRUMAB [Suspect]
     Active Substance: RAMUCIRUMAB
     Indication: COLON CANCER STAGE IV
     Dosage: ONE CYCLE, ADMINISTERED FOR 23 COURSES OVER 1 YEAR
     Route: 065
  5. RAMUCIRUMAB [Suspect]
     Active Substance: RAMUCIRUMAB
     Dosage: ONE CYCLE, ADMINISTERED FOR 23 COURSES OVER 1 YEAR
     Route: 065
  6. FLUOROURACIL. [Suspect]
     Active Substance: FLUOROURACIL
     Indication: COLON CANCER STAGE IV
     Dosage: ONE CYCLE, ADMINISTERED FOR 23 COURSES OVER 1 YEAR
     Route: 065
  7. LEUCOVORIN. [Suspect]
     Active Substance: LEUCOVORIN
     Dosage: ONE CYCLE, ADMINISTERED FOR 23 COURSES OVER 1 YEAR
     Route: 065
  8. BEVACIZUMAB. [Suspect]
     Active Substance: BEVACIZUMAB
     Dosage: ONE CYCLE, ADMINISTERED FOR 23 COURSES OVER 1 YEAR
     Route: 065
  9. LEUCOVORIN. [Suspect]
     Active Substance: LEUCOVORIN
     Indication: COLON CANCER STAGE IV
     Dosage: ONE CYCLE, ADMINISTERED FOR 23 COURSES OVER 1 YEAR
     Route: 065

REACTIONS (4)
  - Thrombotic microangiopathy [Recovering/Resolving]
  - Disease progression [Unknown]
  - Generalised oedema [Recovering/Resolving]
  - Nephrotic syndrome [Recovering/Resolving]
